FAERS Safety Report 6537008-6 (Version None)
Quarter: 2010Q1

REPORT INFORMATION
  Report Type: 
  Country: None (occurrence: None)
  Receive Date: 20100107
  Receipt Date: 20091223
  Transmission Date: 20100710
  Serious: Yes (Hospitalization)
  Sender: FDA-Public Use
  Company Number: 2009-5201

PATIENT
  Age: 18 Year
  Sex: Female

DRUGS (2)
  1. INCRELEX [Suspect]
     Indication: DRUG USE FOR UNKNOWN INDICATION
     Dosage: 0.18MG/KG/DAY (5 MG,2 IN 1 D),SUBCUTANEOUS; 0.08MG/KG/DAY (2.5 MG,2 IN 1 D),SUBCUTANEOUS
     Route: 058
     Dates: start: 20090630, end: 20090723
  2. INCRELEX [Suspect]
     Indication: DRUG USE FOR UNKNOWN INDICATION
     Dosage: 0.18MG/KG/DAY (5 MG,2 IN 1 D),SUBCUTANEOUS; 0.08MG/KG/DAY (2.5 MG,2 IN 1 D),SUBCUTANEOUS
     Route: 058
     Dates: start: 20090724, end: 20090821

REACTIONS (1)
  - RETINOPATHY PROLIFERATIVE [None]
